FAERS Safety Report 23345930 (Version 1)
Quarter: 2023Q4

REPORT INFORMATION
  Report Type: Spontaneous
  Country: US (occurrence: None)
  Receive Date: 20231227
  Receipt Date: 20231227
  Transmission Date: 20240110
  Serious: Yes (Disabling)
  Sender: FDA-Public Use
  Company Number: None

PATIENT
  Age: 69 Year
  Sex: Female
  Weight: 41 kg

DRUGS (1)
  1. TEPEZZA [Suspect]
     Active Substance: TEPROTUMUMAB-TRBW
     Indication: Endocrine ophthalmopathy
     Dosage: OTHER FREQUENCY : MONTHLY;?
     Route: 042
     Dates: start: 20230720, end: 20231004

REACTIONS (2)
  - Deafness neurosensory [None]
  - Deafness bilateral [None]

NARRATIVE: CASE EVENT DATE: 20231024
